FAERS Safety Report 6846790-X (Version None)
Quarter: 2010Q3

REPORT INFORMATION
  Report Type: 
  Country: None (occurrence: None)
  Receive Date: 20100715
  Receipt Date: 20070920
  Transmission Date: 20110219
  Serious: No
  Sender: FDA-Public Use
  Company Number: US-PFIZER INC-2007079795

PATIENT
  Sex: Female

DRUGS (7)
  1. CHANTIX [Suspect]
     Indication: SMOKING CESSATION THERAPY
     Dates: start: 20070901
  2. LAMICTAL [Concomitant]
     Indication: BIPOLAR DISORDER
  3. TOPAMAX [Concomitant]
     Indication: BIPOLAR DISORDER
  4. BUPROPION [Concomitant]
     Indication: BIPOLAR DISORDER
  5. AMBIEN [Concomitant]
  6. CLONAZEPAM [Concomitant]
  7. DHEA [Concomitant]

REACTIONS (7)
  - ABNORMAL DREAMS [None]
  - ANXIETY [None]
  - CRYING [None]
  - DEPRESSION [None]
  - INSOMNIA [None]
  - SOMNOLENCE [None]
  - WEIGHT DECREASED [None]
